FAERS Safety Report 12209243 (Version 2)
Quarter: 2016Q2

REPORT INFORMATION
  Report Type: Spontaneous
  Country: JP (occurrence: JP)
  Receive Date: 20160324
  Receipt Date: 20160523
  Transmission Date: 20160815
  Serious: Yes (Death)
  Sender: FDA-Public Use
  Company Number: JP-MALLINCKRODT-T201601054

PATIENT
  Age: 85 Year
  Sex: Male

DRUGS (12)
  1. MAGMITT [Concomitant]
     Active Substance: MAGNESIUM OXIDE
     Dosage: 990MG
     Route: 048
     Dates: end: 20160305
  2. METHADONE [Suspect]
     Active Substance: METHADONE HYDROCHLORIDE
     Dosage: 10MG (30MG TOTAL DAILY DOSE)
     Route: 048
     Dates: start: 20151224, end: 20160211
  3. METHADONE [Suspect]
     Active Substance: METHADONE HYDROCHLORIDE
     Indication: CANCER PAIN
     Dosage: 5MG (20MG TOTAL DAILY DOSE)
     Route: 048
     Dates: start: 20151217, end: 20151224
  4. LYRICA [Concomitant]
     Active Substance: PREGABALIN
     Dosage: 150MG
     Route: 048
     Dates: start: 20160130, end: 20160228
  5. CALONAL [Concomitant]
     Active Substance: ACETAMINOPHEN
     Indication: ANALGESIC THERAPY
     Dosage: 2400 MG
     Route: 048
     Dates: end: 20151224
  6. LYRICA [Concomitant]
     Active Substance: PREGABALIN
     Indication: ANALGESIC THERAPY
     Dosage: 75MG
     Route: 048
     Dates: start: 20151230, end: 20160129
  7. METHADONE [Suspect]
     Active Substance: METHADONE HYDROCHLORIDE
     Dosage: 10 MG (40 MG TOTAL DAILY DOSE)
     Route: 048
     Dates: start: 20160211, end: 20160308
  8. LOXOPROFEN [Concomitant]
     Active Substance: LOXOPROFEN
     Indication: ANALGESIC THERAPY
     Dosage: 180MG
     Route: 048
     Dates: start: 20151224, end: 20160305
  9. LANSOPRAZOLE. [Concomitant]
     Active Substance: LANSOPRAZOLE
     Dosage: 15MG
     Route: 048
     Dates: start: 20151229, end: 20160305
  10. LYRICA [Concomitant]
     Active Substance: PREGABALIN
     Dosage: 300MG
     Route: 048
     Dates: start: 20160229, end: 20160305
  11. OXINORM [Concomitant]
     Active Substance: OXYCODONE HYDROCHLORIDE
     Indication: ANALGESIC THERAPY
     Dosage: 10MG PRN
     Route: 048
     Dates: start: 20151217
  12. CYTOTEC [Concomitant]
     Active Substance: MISOPROSTOL
     Dosage: 800MCG
     Route: 048
     Dates: end: 20160305

REACTIONS (2)
  - Insomnia [Recovered/Resolved]
  - Non-small cell lung cancer [Fatal]

NARRATIVE: CASE EVENT DATE: 20160114
